FAERS Safety Report 8042482-2 (Version None)
Quarter: 2011Q4

REPORT INFORMATION
  Report Type: 
  Country: None (occurrence: None)
  Receive Date: 20111202
  Receipt Date: 20110822
  Transmission Date: 20120403
  Serious: Yes (Hospitalization)
  Sender: FDA-Public Use
  Company Number: 2011SP039930

PATIENT
  Age: 22 Year
  Sex: Female

DRUGS (2)
  1. NUVARING [Suspect]
     Indication: CONTRACEPTION
     Dosage: 1 DF; ;VAG
     Route: 067
     Dates: start: 20071201, end: 20110816
  2. SEASONIQUE 06/--/2007 - 12/--/2007 [Concomitant]

REACTIONS (1)
  - CEREBROVASCULAR ACCIDENT [None]
